FAERS Safety Report 11777699 (Version 1)
Quarter: 2015Q4

REPORT INFORMATION
  Report Type: Spontaneous
  Country: US (occurrence: None)
  Receive Date: 20151124
  Receipt Date: 20151124
  Transmission Date: 20160304
  Serious: Yes (Hospitalization)
  Sender: FDA-Public Use
  Company Number: None

PATIENT
  Age: 63 Year
  Sex: Male
  Weight: 98 kg

DRUGS (1)
  1. ORENCIA [Suspect]
     Active Substance: ABATACEPT
     Indication: RHEUMATOID ARTHRITIS
     Dosage: 750MG  ONCE, OVER 30 MINS  INTRAVENOUS
     Route: 042
     Dates: start: 20151120

REACTIONS (3)
  - Infusion related reaction [None]
  - Urticaria [None]
  - No therapeutic response [None]

NARRATIVE: CASE EVENT DATE: 20151120
